FAERS Safety Report 4889265-X (Version None)
Quarter: 2006Q1

REPORT INFORMATION
  Report Type: 
  Country: None (occurrence: None)
  Receive Date: 20060124
  Receipt Date: 20060103
  Transmission Date: 20060701
  Serious: Yes (Disabling)
  Sender: FDA-Public Use
  Company Number: 2006CG00081

PATIENT
  Age: 14507 Day
  Sex: Male
  Weight: 66 kg

DRUGS (5)
  1. MARCAINE [Suspect]
     Indication: ANAESTHESIA
     Route: 053
     Dates: start: 20020114, end: 20020114
  2. MOPRAL [Concomitant]
     Dates: start: 20020117
  3. INNOHEP [Concomitant]
     Dates: start: 20020117
  4. FLECTOR [Concomitant]
     Dates: start: 20020117
  5. DIALGIREX [Concomitant]
     Dates: start: 20020117

REACTIONS (7)
  - BURNING SENSATION [None]
  - HYPOAESTHESIA [None]
  - IMPAIRED HEALING [None]
  - MUSCULAR WEAKNESS [None]
  - NECROSIS [None]
  - PAIN IN EXTREMITY [None]
  - SENSORY LOSS [None]
